FAERS Safety Report 12828217 (Version 1)
Quarter: 2016Q4

REPORT INFORMATION
  Report Type: Spontaneous
  Country: US (occurrence: US)
  Receive Date: 20161007
  Receipt Date: 20161007
  Transmission Date: 20170207
  Serious: Yes (Other)
  Sender: FDA-Public Use
  Company Number: US-JNJFOC-20161003590

PATIENT
  Sex: Female
  Weight: 90.27 kg

DRUGS (5)
  1. ORTHO TRI CYCLEN LO [Suspect]
     Active Substance: ETHINYL ESTRADIOL\NORGESTIMATE
     Indication: ORAL CONTRACEPTION
     Route: 048
     Dates: start: 201609
  2. DOXYCYCLINE. [Interacting]
     Active Substance: DOXYCYCLINE
     Indication: CHLAMYDIAL INFECTION
     Route: 065
     Dates: start: 2007
  3. ORTHO TRI CYCLEN LO [Suspect]
     Active Substance: ETHINYL ESTRADIOL\NORGESTIMATE
     Indication: ORAL CONTRACEPTION
     Route: 048
     Dates: start: 200705
  4. ORTHO TRI CYCLEN LO [Suspect]
     Active Substance: ETHINYL ESTRADIOL\NORGESTIMATE
     Indication: ORAL CONTRACEPTION
     Route: 048
     Dates: start: 201608
  5. DOXYCYCLINE. [Interacting]
     Active Substance: DOXYCYCLINE
     Indication: CHLAMYDIAL INFECTION
     Route: 065
     Dates: start: 20160916, end: 20160923

REACTIONS (4)
  - Drug interaction [Unknown]
  - Chlamydial infection [Unknown]
  - Pregnancy on oral contraceptive [Unknown]
  - Anxiety [Not Recovered/Not Resolved]

NARRATIVE: CASE EVENT DATE: 2007
